FAERS Safety Report 7548385-1 (Version None)
Quarter: 2011Q2

REPORT INFORMATION
  Report Type: 
  Country: None (occurrence: None)
  Receive Date: 20110615
  Receipt Date: 20110601
  Transmission Date: 20111010
  Serious: Yes (Hospitalization)
  Sender: FDA-Public Use
  Company Number: PL-AMGEN-QUU417919

PATIENT
  Age: 59 Year
  Sex: Male

DRUGS (8)
  1. TROPICAMIDE [Concomitant]
     Dosage: UNK
     Dates: start: 20100505
  2. HYDROXYZINUM [Concomitant]
     Dosage: UNK
     Dates: start: 20100505, end: 20100512
  3. DICORTINEFF                        /01247001/ [Concomitant]
  4. METHOTREXATE [Suspect]
     Indication: RHEUMATOID ARTHRITIS
     Dosage: 10 MG, QWK
     Route: 048
     Dates: start: 20100330
  5. BLINDED ETANERCEPT [Suspect]
     Indication: RHEUMATOID ARTHRITIS
     Dosage: 50 MG, QWK
     Route: 058
     Dates: start: 20100330
  6. PLACEBO [Suspect]
     Indication: RHEUMATOID ARTHRITIS
     Dosage: 50 MG, QWK
     Route: 058
     Dates: start: 20100330
  7. TRUSOPT [Concomitant]
     Dosage: UNK
     Dates: start: 20100505, end: 20100512
  8. TOBRAMYCIN [Concomitant]
     Dosage: UNK
     Dates: start: 20100505, end: 20100512

REACTIONS (1)
  - CATARACT [None]
